FAERS Safety Report 9042699 (Version 1)
Quarter: 2013Q1

REPORT INFORMATION
  Report Type: Report from Study
  Country: US (occurrence: US)
  Receive Date: 20130129
  Receipt Date: 20130129
  Transmission Date: 20140127
  Serious: No
  Sender: FDA-Public Use
  Company Number: US-ABBOTT-12P-163-0905727-00

PATIENT
  Age: 34 Year
  Sex: Female

DRUGS (6)
  1. HUMIRA 40 MG/0.8 ML PEN [Suspect]
     Indication: COLITIS ULCERATIVE
     Dates: start: 20111208
  2. VSL DS PROBIOTIC [Concomitant]
     Indication: COLITIS ULCERATIVE
  3. SYNTHROID [Concomitant]
     Indication: HYPOTHYROIDISM
  4. MULTIVITAMINS OTC [Concomitant]
     Indication: VITAMIN SUPPLEMENTATION
  5. CALCIUM 500 MG/VITAMIN D3 [Concomitant]
     Indication: PRODUCT USED FOR UNKNOWN INDICATION
     Dosage: 200 UNITS X 2 PILLS, 1 IN 1 D
  6. VITAMIN D2 [Concomitant]
     Indication: VITAMIN SUPPLEMENTATION

REACTIONS (2)
  - Nasopharyngitis [Recovering/Resolving]
  - Pyrexia [Recovering/Resolving]
